FAERS Safety Report 5006975-4 (Version None)
Quarter: 2006Q2

REPORT INFORMATION
  Report Type: 
  Country: None (occurrence: None)
  Receive Date: 20060516
  Receipt Date: 20060427
  Transmission Date: 20061013
  Serious: Yes (Death)
  Sender: FDA-Public Use
  Company Number: GB200605001780

PATIENT
  Age: 14 Year
  Sex: Male

DRUGS (1)
  1. SOMATROPIN (SOMATROPIN UNKNOWN FORMULATION) UNKNOWN [Suspect]
     Indication: PRADER-WILLI SYNDROME
     Dosage: 0.11 MG/KG, WEEKLY (1/W), UNK
     Route: 065

REACTIONS (4)
  - CONDITION AGGRAVATED [None]
  - RESPIRATORY FAILURE [None]
  - RIGHT VENTRICULAR FAILURE [None]
  - UPPER RESPIRATORY TRACT INFECTION [None]
